FAERS Safety Report 21999339 (Version 2)
Quarter: 2025Q2

REPORT INFORMATION
  Report Type: Spontaneous
  Country: US (occurrence: US)
  Receive Date: 20230216
  Receipt Date: 20250401
  Transmission Date: 20250717
  Serious: No
  Sender: SANOFI AVENTIS
  Company Number: US-SA-SAC20230215000312

PATIENT
  Age: 22 Year
  Sex: Male
  Weight: 53.515 kg

DRUGS (1)
  1. DUPIXENT [Suspect]
     Active Substance: DUPILUMAB
     Indication: Dermatitis atopic
     Dosage: 300 MG, QOW
     Route: 058

REACTIONS (8)
  - Malaise [Unknown]
  - Condition aggravated [Unknown]
  - Nasal congestion [Unknown]
  - Condition aggravated [Unknown]
  - Rhinorrhoea [Unknown]
  - Condition aggravated [Unknown]
  - Cough [Unknown]
  - Therapeutic response shortened [Unknown]

NARRATIVE: CASE EVENT DATE: 20250322
